FAERS Safety Report 9042602 (Version 1)
Quarter: 2013Q1

REPORT INFORMATION
  Report Type: Report from Study
  Country: US (occurrence: US)
  Receive Date: 20130129
  Receipt Date: 20130129
  Transmission Date: 20140127
  Serious: No
  Sender: FDA-Public Use
  Company Number: US-ABBOTT-12P-163-0908038-00

PATIENT
  Age: 48 Year
  Sex: Female

DRUGS (5)
  1. HUMIRA 40 MG/0.8 ML PEN [Suspect]
     Indication: CROHN^S DISEASE
     Dosage: LOADING DOSE
     Dates: start: 20120222
  2. PROZAC [Concomitant]
     Indication: DEPRESSION
  3. FLONASE [Concomitant]
     Indication: HYPERSENSITIVITY
  4. SYNTHROID [Concomitant]
     Indication: PRODUCT USED FOR UNKNOWN INDICATION
     Dosage: MONDAY, WEDNESDAY, AND FRIDAY
  5. SYNTHROID [Concomitant]
     Dosage: SUNDAY, TUESDAY, THURSDAY, AND SATURDAY

REACTIONS (3)
  - Injection site pain [Not Recovered/Not Resolved]
  - Headache [Not Recovered/Not Resolved]
  - Drug prescribing error [Recovered/Resolved]
